FAERS Safety Report 16995405 (Version 5)
Quarter: 2021Q3

REPORT INFORMATION
  Report Type: Spontaneous
  Country: US (occurrence: US)
  Receive Date: 20191105
  Receipt Date: 20210922
  Transmission Date: 20211014
  Serious: No
  Sender: FDA-Public Use
  Company Number: US-PFIZER INC-2019071013

PATIENT
  Age: 60 Year
  Sex: Female
  Weight: 90.72 kg

DRUGS (3)
  1. LYRICA [Suspect]
     Active Substance: PREGABALIN
     Indication: NEURALGIA
     Dosage: 150 MG, 3X/DAY
     Route: 048
  2. LYRICA [Suspect]
     Active Substance: PREGABALIN
     Indication: NEUROPATHY PERIPHERAL
     Dosage: 450 MG, DAILY, 1?150MG CAP IN THE AM AND TWO 150MG CAPSULES AT PM
     Route: 048
  3. LYRICA [Suspect]
     Active Substance: PREGABALIN
     Indication: FIBROMYALGIA
     Dosage: 450 MG, DAILY, [1 CAPS IN THE AM AND 2 CAPS IN PM AS DIRECTED 30 DAYS]
     Route: 048
     Dates: start: 2009

REACTIONS (3)
  - Somnolence [Unknown]
  - Peripheral swelling [Unknown]
  - Weight increased [Unknown]
